FAERS Safety Report 25604966 (Version 1)
Quarter: 2025Q3

REPORT INFORMATION
  Report Type: Report from Study
  Country: CO (occurrence: CO)
  Receive Date: 20250725
  Receipt Date: 20250725
  Transmission Date: 20251021
  Serious: Yes (Other)
  Sender: AKCEA THERAPEUTICS
  Company Number: CO-AKCEA THERAPEUTICS, INC.-2025IS000822

PATIENT

DRUGS (2)
  1. TEGSEDI [Suspect]
     Active Substance: INOTERSEN SODIUM
     Indication: Hereditary neuropathic amyloidosis
     Dosage: 284 MILLIGRAM, QW
     Route: 058
     Dates: start: 20231202
  2. BUPRENORPHINE [Concomitant]
     Active Substance: BUPRENORPHINE
     Indication: Product used for unknown indication
     Route: 065

REACTIONS (9)
  - Metastatic neoplasm [Unknown]
  - Pathological fracture [Unknown]
  - Scoliosis [Unknown]
  - Intervertebral discitis [Unknown]
  - Osteopenia [Unknown]
  - Intervertebral disc protrusion [Unknown]
  - Lordosis [Unknown]
  - Muscle spasms [Unknown]
  - Balance disorder [Unknown]

NARRATIVE: CASE EVENT DATE: 20250716
